FAERS Safety Report 21273589 (Version 7)
Quarter: 2025Q3

REPORT INFORMATION
  Report Type: Report from Study
  Country: CA (occurrence: CA)
  Receive Date: 20220831
  Receipt Date: 20250718
  Transmission Date: 20251020
  Serious: Yes (Other)
  Sender: CELLTRION
  Company Number: CA-CELLTRION INC.-2021CA019364

PATIENT

DRUGS (42)
  1. RITUXIMAB [Suspect]
     Active Substance: RITUXIMAB
     Indication: Rheumatoid arthritis
     Dosage: 1000 MILLIGRAM 1 EVERY 2 WEEKS
     Route: 042
  2. RITUXIMAB [Suspect]
     Active Substance: RITUXIMAB
     Route: 042
  3. RITUXIMAB [Suspect]
     Active Substance: RITUXIMAB
     Route: 042
  4. RITUXIMAB [Suspect]
     Active Substance: RITUXIMAB
     Route: 042
  5. RITUXIMAB [Suspect]
     Active Substance: RITUXIMAB
     Route: 042
  6. RITUXIMAB [Suspect]
     Active Substance: RITUXIMAB
     Route: 042
  7. RITUXIMAB [Suspect]
     Active Substance: RITUXIMAB
     Route: 042
  8. HYDROXYCHLOROQUINE SULFATE [Suspect]
     Active Substance: HYDROXYCHLOROQUINE SULFATE
     Indication: Product used for unknown indication
     Route: 065
  9. HYDROXYCHLOROQUINE SULFATE [Suspect]
     Active Substance: HYDROXYCHLOROQUINE SULFATE
     Route: 065
  10. METHOTREXATE [Suspect]
     Active Substance: METHOTREXATE
     Indication: Rheumatoid arthritis
     Route: 058
  11. METHOTREXATE [Suspect]
     Active Substance: METHOTREXATE
     Indication: Rheumatoid arthritis
     Route: 058
  12. ACETAMINOPHEN [Concomitant]
     Active Substance: ACETAMINOPHEN
     Indication: Premedication
     Route: 048
  13. DIPHENHYDRAMINE HYDROCHLORIDE [Concomitant]
     Active Substance: DIPHENHYDRAMINE HYDROCHLORIDE
     Indication: Premedication
     Route: 048
  14. DIPHENHYDRAMINE HYDROCHLORIDE [Concomitant]
     Active Substance: DIPHENHYDRAMINE HYDROCHLORIDE
     Route: 048
  15. DIPHENHYDRAMINE HYDROCHLORIDE [Concomitant]
     Active Substance: DIPHENHYDRAMINE HYDROCHLORIDE
     Route: 048
  16. FOLIC ACID [Concomitant]
     Active Substance: FOLIC ACID
  17. GLUCOSAMINE [Concomitant]
     Active Substance: GLUCOSAMINE
  18. GRAVOL [Concomitant]
     Active Substance: DIMENHYDRINATE
     Indication: Premedication
     Route: 048
  19. GRAVOL [Concomitant]
     Active Substance: DIMENHYDRINATE
     Indication: Premedication
     Route: 048
  20. HYALURONIC ACID [Concomitant]
     Active Substance: HYALURONIC ACID
  21. IMOVANE [Concomitant]
     Active Substance: ZOPICLONE
  22. LACTOBACILLUS ACIDOPHILUS [Concomitant]
     Active Substance: LACTOBACILLUS ACIDOPHILUS
  23. LACTOBACILLUS ACIDOPHILUS [Concomitant]
     Active Substance: LACTOBACILLUS ACIDOPHILUS
  24. MAGNESIUM [Concomitant]
     Active Substance: MAGNESIUM
  25. MELOXICAM [Concomitant]
     Active Substance: MELOXICAM
  26. MENATETRENONE [Concomitant]
     Active Substance: MENATETRENONE
  27. MENATETRENONE [Concomitant]
     Active Substance: MENATETRENONE
  28. METHYLPREDNISOLONE [Concomitant]
     Active Substance: METHYLPREDNISOLONE
     Indication: Premedication
     Route: 042
  29. DIMETHYL SULFONE [Concomitant]
     Active Substance: DIMETHYL SULFONE
  30. PREDNISONE [Concomitant]
     Active Substance: PREDNISONE
  31. PREMARIN [Concomitant]
     Active Substance: ESTROGENS, CONJUGATED
  32. HERBALS\TURMERIC [Concomitant]
     Active Substance: HERBALS\TURMERIC
  33. VAGIFEM [Concomitant]
     Active Substance: ESTRADIOL
  34. VITAMIN C [Concomitant]
     Active Substance: ASCORBIC ACID
  35. VITAMIN D3 [Concomitant]
     Active Substance: CHOLECALCIFEROL
  36. VITAMIN D3 [Concomitant]
     Active Substance: CHOLECALCIFEROL
  37. MENAQUINONE 6 [Concomitant]
     Active Substance: MENAQUINONE 6
  38. ZINC [Concomitant]
     Active Substance: ZINC
  39. GINGER [Concomitant]
     Active Substance: GINGER
  40. GINGER [Concomitant]
     Active Substance: GINGER
  41. GINGER [Concomitant]
     Active Substance: GINGER
  42. MELOXICAM [Concomitant]
     Active Substance: MELOXICAM

REACTIONS (26)
  - Blood pressure systolic increased [Not Recovered/Not Resolved]
  - Body temperature decreased [Not Recovered/Not Resolved]
  - Eye disorder [Not Recovered/Not Resolved]
  - Feeling cold [Not Recovered/Not Resolved]
  - Joint swelling [Not Recovered/Not Resolved]
  - Limb mass [Not Recovered/Not Resolved]
  - Malaise [Not Recovered/Not Resolved]
  - Nerve compression [Not Recovered/Not Resolved]
  - Peripheral coldness [Not Recovered/Not Resolved]
  - Procedural complication [Not Recovered/Not Resolved]
  - Respiratory rate increased [Not Recovered/Not Resolved]
  - Osteoporosis [Not Recovered/Not Resolved]
  - Tooth disorder [Not Recovered/Not Resolved]
  - Weight increased [Not Recovered/Not Resolved]
  - Burning sensation [Not Recovered/Not Resolved]
  - Chills [Not Recovered/Not Resolved]
  - Cough [Not Recovered/Not Resolved]
  - Nausea [Not Recovered/Not Resolved]
  - Blood pressure increased [Not Recovered/Not Resolved]
  - Arthralgia [Not Recovered/Not Resolved]
  - Abdominal pain upper [Not Recovered/Not Resolved]
  - Adverse drug reaction [Not Recovered/Not Resolved]
  - Infusion related reaction [Not Recovered/Not Resolved]
  - Pain [Not Recovered/Not Resolved]
  - Pruritus [Not Recovered/Not Resolved]
  - Drug ineffective [Not Recovered/Not Resolved]
